FAERS Safety Report 8803877 (Version 1)
Quarter: 2012Q4

REPORT INFORMATION
  Report Type: 
  Country: GB (occurrence: GB)
  Receive Date: 20120923
  Receipt Date: 20120923
  Transmission Date: 20130627
  Serious: Yes (Other)
  Sender: FDA-Public Use
  Company Number: PHHY2011GB117321

PATIENT
  Sex: Male

DRUGS (2)
  1. CLOZAPINE [Suspect]
  2. CLOZAPINE [Suspect]
     Dosage: UNK UKN, UNK

REACTIONS (2)
  - Colitis ulcerative [Unknown]
  - Condition aggravated [Unknown]
